FAERS Safety Report 9204789 (Version 2)
Quarter: 2013Q2

REPORT INFORMATION
  Report Type: Report from Study
  Country: FR (occurrence: FR)
  Receive Date: 20130402
  Receipt Date: 20130402
  Transmission Date: 20140414
  Serious: Yes (Hospitalization)
  Sender: FDA-Public Use
  Company Number: FR-PFIZER INC-2012316045

PATIENT
  Age: 58 Year
  Sex: Male
  Weight: 85 kg

DRUGS (3)
  1. ZYVOXID [Suspect]
     Indication: PNEUMONIA
     Dosage: 600 MG, 2X/DAY
     Route: 042
     Dates: start: 20121018, end: 201211
  2. LYRICA [Suspect]
     Dosage: UNK
     Dates: start: 20121018, end: 20121022
  3. RIMACTANE [Suspect]
     Indication: BACTERIAL INFECTION
     Dosage: 900 MG, 2X/DAY
     Dates: start: 201211

REACTIONS (1)
  - Chest pain [Recovered/Resolved]
